FAERS Safety Report 7750557-8 (Version None)
Quarter: 2011Q3

REPORT INFORMATION
  Report Type: 
  Country: None (occurrence: None)
  Receive Date: 20110914
  Receipt Date: 20110909
  Transmission Date: 20111222
  Serious: Yes (Hospitalization, Disabling)
  Sender: FDA-Public Use
  Company Number: GB-MERCK-1108GBR00109

PATIENT
  Age: 63 Year
  Sex: Female
  Weight: 35 kg

DRUGS (8)
  1. AMLODIPINE [Concomitant]
     Route: 065
  2. TIOTROPIUM BROMIDE [Concomitant]
     Route: 065
  3. FOSAMAX [Suspect]
     Indication: OSTEOPOROSIS
     Route: 048
     Dates: start: 20081217, end: 20110804
  4. DOXAZOSIN MESYLATE [Concomitant]
     Route: 065
  5. FLUTICASONE PROPIONATE AND SALMETEROL XINAFOATE [Concomitant]
     Route: 065
  6. CALCIUM CARBONATE AND CHOLECALCIFEROL [Concomitant]
     Route: 065
  7. RABEPRAZOLE SODIUM [Concomitant]
     Route: 065
  8. RAMIPRIL [Concomitant]
     Route: 065

REACTIONS (3)
  - JAW FRACTURE [None]
  - ORAL DISCHARGE [None]
  - OSTEONECROSIS OF JAW [None]
